FAERS Safety Report 7247443-9 (Version None)
Quarter: 2011Q1

REPORT INFORMATION
  Report Type: 
  Country: None (occurrence: None)
  Receive Date: 20110127
  Receipt Date: 20110121
  Transmission Date: 20110831
  Serious: Yes (Death)
  Sender: FDA-Public Use
  Company Number: PHHY2011US05251

PATIENT
  Sex: Female

DRUGS (6)
  1. VITAMIN D [Concomitant]
     Dosage: 1000/UNITS
  2. AFINITOR [Suspect]
     Dosage: 10 MG, UNK
  3. GABAPENTIN [Concomitant]
     Dosage: 300 MG, UNK
  4. FISH OIL [Concomitant]
     Dosage: 1200 MG, UNK
  5. MULTI-VITAMINS [Concomitant]
  6. FLUOXETINE HCL [Concomitant]
     Dosage: 10 MG, UNK

REACTIONS (1)
  - DEATH [None]
